FAERS Safety Report 7892343-4 (Version None)
Quarter: 2011Q4

REPORT INFORMATION
  Report Type: 
  Country: None (occurrence: None)
  Receive Date: 20111103
  Receipt Date: 20111103
  Transmission Date: 20120403
  Serious: Yes (Hospitalization)
  Sender: FDA-Public Use
  Company Number: None

PATIENT
  Age: 62 Year
  Sex: Male
  Weight: 113 kg

DRUGS (8)
  1. RISPERIDONE [Suspect]
     Indication: PERSONALITY DISORDER
     Dosage: 2MG DAILY ORAL
     Route: 048
  2. APAP TAB [Concomitant]
  3. DIAZEPAM [Concomitant]
  4. PROPRANOLOL [Concomitant]
  5. AMLODIPINE [Concomitant]
  6. FOLIC ACID [Concomitant]
  7. MESALAMINE [Concomitant]
  8. OLANZAPINE [Concomitant]

REACTIONS (1)
  - NEUROLEPTIC MALIGNANT SYNDROME [None]
